FAERS Safety Report 21518966 (Version 3)
Quarter: 2023Q1

REPORT INFORMATION
  Report Type: Report from Study
  Country: US (occurrence: US)
  Receive Date: 20221028
  Receipt Date: 20230210
  Transmission Date: 20230417
  Serious: Yes (Hospitalization)
  Sender: FDA-Public Use
  Company Number: US-ABBVIE-4177414

PATIENT
  Sex: Female

DRUGS (3)
  1. IMBRUVICA [Suspect]
     Active Substance: IBRUTINIB
     Indication: Chronic lymphocytic leukaemia
     Route: 048
     Dates: start: 20180101, end: 20230101
  2. Pfizer/BioNTech [Concomitant]
     Indication: COVID-19 immunisation
     Dosage: 1 IN ONCE ?FIRST DOSE
     Route: 030
     Dates: start: 202101, end: 202101
  3. Pfizer/BioNTech [Concomitant]
     Indication: COVID-19 immunisation
     Dosage: 1 IN ONCE?SECOND DOSE
     Route: 030
     Dates: start: 202102, end: 202102

REACTIONS (4)
  - Localised infection [Recovering/Resolving]
  - Skin laceration [Not Recovered/Not Resolved]
  - Peripheral swelling [Recovering/Resolving]
  - Bone pain [Not Recovered/Not Resolved]
